FAERS Safety Report 10210211 (Version 3)
Quarter: 2014Q2

REPORT INFORMATION
  Report Type: Spontaneous
  Country: DE (occurrence: DE)
  Receive Date: 20140602
  Receipt Date: 20140612
  Transmission Date: 20141212
  Serious: No
  Sender: FDA-Public Use
  Company Number: PHHY2014DE050901

PATIENT
  Sex: Female

DRUGS (1)
  1. FORADIL P [Suspect]
     Dosage: UNK

REACTIONS (8)
  - Pharyngeal oedema [Recovered/Resolved]
  - Choking [Recovered/Resolved]
  - Therapeutic response changed [Recovered/Resolved]
  - Mucosal discolouration [Recovered/Resolved]
  - Hyperhidrosis [Recovered/Resolved]
  - Nausea [Recovered/Resolved]
  - Tremor [Recovered/Resolved]
  - Cough [Recovered/Resolved]
